FAERS Safety Report 8985764 (Version 1)
Quarter: 2012Q4

REPORT INFORMATION
  Report Type: 
  Country: US (occurrence: US)
  Receive Date: 20121226
  Receipt Date: 20121226
  Transmission Date: 20130627
  Serious: Yes (Other)
  Sender: FDA-Public Use
  Company Number: US-ASTRAZENECA-2012SE94245

PATIENT
  Age: 78 Year
  Sex: Female

DRUGS (2)
  1. CRESTOR [Suspect]
     Route: 048
     Dates: start: 201208, end: 201209
  2. BRILINTA [Suspect]
     Route: 048

REACTIONS (3)
  - Fall [Unknown]
  - Myalgia [Not Recovered/Not Resolved]
  - Myopathy [Unknown]
